FAERS Safety Report 7745398-1 (Version None)
Quarter: 2011Q3

REPORT INFORMATION
  Report Type: 
  Country: None (occurrence: None)
  Receive Date: 20110913
  Receipt Date: 20110906
  Transmission Date: 20111222
  Serious: Yes (Death, Hospitalization)
  Sender: FDA-Public Use
  Company Number: US-BAYER-2011-074025

PATIENT
  Sex: Male
  Weight: 78.7 kg

DRUGS (2)
  1. MDX-010 [Suspect]
     Indication: MALIGNANT MELANOMA
     Dosage: 10 MG/KG IV OVER 90 MIN ON DAY 1 OF A CYCLE OF 21 DAYS
     Route: 042
     Dates: start: 20110728, end: 20110728
  2. SARGRAMOSTIM [Suspect]
     Indication: MALIGNANT MELANOMA
     Dosage: 250 MCG/DAY SQ ON DAYS 1-14 OF A CYCLUS OF 21 DAYS
     Route: 058
     Dates: start: 20110707, end: 20110810

REACTIONS (3)
  - MALIGNANT MELANOMA [None]
  - DEHYDRATION [None]
  - FATIGUE [None]
